FAERS Safety Report 18584755 (Version 1)
Quarter: 2020Q4

REPORT INFORMATION
  Report Type: Spontaneous
  Country: US (occurrence: US)
  Receive Date: 20201203
  Receipt Date: 20201203
  Transmission Date: 20210114
  Serious: Yes (Hospitalization)
  Sender: FDA-Public Use
  Company Number: None

PATIENT
  Age: 40 Year
  Sex: Female
  Weight: 116 kg

DRUGS (1)
  1. ASPIRIN. [Suspect]
     Active Substance: ASPIRIN
     Dates: end: 20191114

REACTIONS (6)
  - Uterine polyp [None]
  - Endometrial hyperplasia [None]
  - Vaginal haemorrhage [None]
  - Therapy cessation [None]
  - Endometrial adenocarcinoma [None]
  - Menorrhagia [None]

NARRATIVE: CASE EVENT DATE: 20201120
